FAERS Safety Report 13376723 (Version 1)
Quarter: 2017Q1

REPORT INFORMATION
  Report Type: Spontaneous
  Country: US (occurrence: US)
  Receive Date: 20170327
  Receipt Date: 20170327
  Transmission Date: 20170429
  Serious: Yes (Disabling)
  Sender: FDA-Public Use
  Company Number: None

PATIENT
  Age: 32 Year
  Sex: Female
  Weight: 78.75 kg

DRUGS (5)
  1. ABILIFY [Concomitant]
     Active Substance: ARIPIPRAZOLE
  2. LEVAQUIN [Suspect]
     Active Substance: LEVOFLOXACIN
     Indication: BACTERIAL INFECTION
     Route: 048
  3. VAGIFEM [Concomitant]
     Active Substance: ESTRADIOL
  4. DULOXETINE. [Concomitant]
     Active Substance: DULOXETINE
  5. ESTROGEN [Concomitant]
     Active Substance: ESTROGENS

REACTIONS (2)
  - Arthralgia [None]
  - Joint range of motion decreased [None]

NARRATIVE: CASE EVENT DATE: 20170128
